FAERS Safety Report 7079307-8 (Version None)
Quarter: 2010Q4

REPORT INFORMATION
  Report Type: 
  Country: None (occurrence: None)
  Receive Date: 20101102
  Receipt Date: 20101029
  Transmission Date: 20110411
  Serious: Yes (Death)
  Sender: FDA-Public Use
  Company Number: IN-US-EMD SERONO, INC.-7019448

PATIENT
  Sex: Female
  Weight: 51 kg

DRUGS (29)
  1. CLADRIBINE [Suspect]
     Indication: MULTIPLE SCLEROSIS
     Route: 048
     Dates: start: 20100723, end: 20100727
  2. REBIF [Suspect]
     Indication: MULTIPLE SCLEROSIS
     Route: 058
     Dates: start: 20100915, end: 20100917
  3. NEUGALIN-M [Concomitant]
     Indication: NEURALGIA
     Route: 048
     Dates: start: 20100609, end: 20100919
  4. LONAZEP [Concomitant]
     Indication: PROPHYLAXIS
     Route: 048
     Dates: start: 20100609, end: 20100805
  5. TEGRITAI CR( TEGRETOL) [Concomitant]
  6. LIGOGEN (LIOFEN) XL [Concomitant]
  7. AMICON (AMITRIPTYLINE HCL+ CHLORDIAZEPOXIDE) [Concomitant]
  8. HAPPI D (DOMPERIDONE + RABEPRAZOLE ) [Concomitant]
     Indication: MULTIPLE SCLEROSIS RELAPSE
  9. HAPPI D (DOMPERIDONE + RABEPRAZOLE ) [Concomitant]
     Route: 042
     Dates: start: 20100828, end: 20100902
  10. HAPPI D (DOMPERIDONE + RABEPRAZOLE ) [Concomitant]
     Route: 048
     Dates: start: 20100903, end: 20100919
  11. HAPPI D (DOMPERIDONE + RABEPRAZOLE ) [Concomitant]
  12. HAPPI D (DOMPERIDONE + RABEPRAZOLE ) [Concomitant]
     Route: 042
     Dates: start: 20100828, end: 20100902
  13. HAPPI D (DOMPERIDONE + RABEPRAZOLE ) [Concomitant]
     Route: 048
     Dates: start: 20100903, end: 20100919
  14. RUDIMINALPHA (METHYLCOBALAMIN, PYRIDOXONE, LIPOIC ACID AND FOLIC ACID [Concomitant]
  15. CLONAM [Concomitant]
     Indication: PROPHYLAXIS
     Route: 048
     Dates: start: 20100806, end: 20100829
  16. CLONAM [Concomitant]
     Route: 048
     Dates: start: 20100830, end: 20100919
  17. METHYLPREDNISOLONE [Concomitant]
     Indication: MULTIPLE SCLEROSIS RELAPSE
     Route: 042
     Dates: start: 20100827, end: 20100831
  18. OMEZ-D [Concomitant]
     Indication: MULTIPLE SCLEROSIS RELAPSE
     Route: 048
     Dates: start: 20100827, end: 20100828
  19. OMEZ-D [Concomitant]
     Route: 048
     Dates: start: 20100827, end: 20100828
  20. PERINAM [Concomitant]
     Indication: PROPHYLAXIS
     Dosage: 2 CC
     Route: 042
     Dates: start: 20100828, end: 20100902
  21. MUCAINE [Concomitant]
     Indication: GASTRITIS PROPHYLAXIS
     Route: 048
     Dates: start: 20100828, end: 20100919
  22. EMESET [Concomitant]
     Indication: VOMITING
     Route: 042
     Dates: start: 20100909, end: 20100919
  23. PERFALGAN [Concomitant]
     Indication: PAIN
     Route: 042
     Dates: start: 20100909, end: 20100910
  24. PERFALGAN [Concomitant]
     Indication: PYREXIA
     Route: 042
     Dates: start: 20100909, end: 20100910
  25. MICROTAZ [Concomitant]
     Indication: ANTIBIOTIC THERAPY
     Route: 042
     Dates: start: 20100910, end: 20100915
  26. MICROTAZ [Concomitant]
     Indication: NAUSEA
  27. DUOLIN NEX [Concomitant]
     Dates: start: 20100910, end: 20100916
  28. DOLO [Concomitant]
     Route: 048
     Dates: start: 20100915, end: 20100919
  29. DUPHALAC [Concomitant]
     Route: 048
     Dates: start: 20100917, end: 20100919

REACTIONS (1)
  - CARDIO-RESPIRATORY ARREST [None]
